FAERS Safety Report 17353209 (Version 1)
Quarter: 2020Q1

REPORT INFORMATION
  Report Type: Report from Study
  Country: US (occurrence: US)
  Receive Date: 20200131
  Receipt Date: 20200131
  Transmission Date: 20200409
  Serious: Yes (Other)
  Sender: FDA-Public Use
  Company Number: US-BIOGEN-2020BI00832051

PATIENT
  Sex: Male

DRUGS (1)
  1. TECFIDERA [Suspect]
     Active Substance: DIMETHYL FUMARATE
     Indication: MULTIPLE SCLEROSIS
     Route: 065
     Dates: start: 20161101, end: 20170622

REACTIONS (6)
  - Diverticulitis [Unknown]
  - Bacterial infection [Unknown]
  - Large intestine perforation [Unknown]
  - Escherichia infection [Unknown]
  - Intentional product misuse [Unknown]
  - Product dose omission [Unknown]
